FAERS Safety Report 9331975 (Version 2)
Quarter: 2013Q2

REPORT INFORMATION
  Report Type: Spontaneous
  Country: US (occurrence: None)
  Receive Date: 20130603
  Receipt Date: 20130621
  Transmission Date: 20140414
  Serious: Yes (Other)
  Sender: FDA-Public Use
  Company Number: ACO_36360_2013

PATIENT
  Age: 49 Year
  Sex: Female
  Weight: 74.8 kg

DRUGS (7)
  1. AMPYRA (DALFAMPRIDINE) TABLET, 10MG [Suspect]
     Indication: GAIT DISTURBANCE
     Route: 048
     Dates: start: 201304, end: 20130519
  2. ATENOLOL (ATENOLOL) [Concomitant]
  3. PANTOPRAZOLE (PANTOPRAZOLE SODIUM SESQUIHYDRATE) [Concomitant]
  4. PAXIL (PAROXETINE HYDROCHLORIDE) [Concomitant]
  5. TOPIRAMATE (TOPIRAMATE) [Concomitant]
  6. SIMVASTATIN (SIMVASTATIN) [Concomitant]
  7. GABAPENTIN (GABAPENTIN) [Concomitant]

REACTIONS (3)
  - Hallucination, auditory [None]
  - Hallucination, olfactory [None]
  - Tinnitus [None]
